FAERS Safety Report 22264028 (Version 1)
Quarter: 2023Q2

REPORT INFORMATION
  Report Type: Spontaneous
  Country: GB (occurrence: GB)
  Receive Date: 20230428
  Receipt Date: 20230428
  Transmission Date: 20230721
  Serious: Yes (Hospitalization)
  Sender: FDA-Public Use
  Company Number: GB-MYLANLABS-2023M1045148

PATIENT
  Age: 23 Year
  Sex: Male

DRUGS (1)
  1. CYSTEAMINE [Suspect]
     Active Substance: CYSTEAMINE
     Indication: Cystinosis
     Dosage: 1 GTT DROPS, QID, (1 DROP IN BOTH EYES, QID)
     Route: 047
     Dates: start: 202205

REACTIONS (1)
  - Renal transplant [Unknown]
